FAERS Safety Report 11470634 (Version 2)
Quarter: 2015Q3

REPORT INFORMATION
  Report Type: Spontaneous
  Country: US (occurrence: US)
  Receive Date: 20150903
  Receipt Date: 20150903
  Transmission Date: 20151125
  Serious: No
  Sender: FDA-Public Use
  Company Number: US-ELI_LILLY_AND_COMPANY-US201201000100

PATIENT
  Age: 69 Year
  Sex: Female

DRUGS (2)
  1. XANAX [Concomitant]
     Active Substance: ALPRAZOLAM
  2. CYMBALTA [Suspect]
     Active Substance: DULOXETINE HYDROCHLORIDE
     Indication: ANXIETY
     Dosage: 30 MG, UNK
     Dates: start: 201111, end: 20111225

REACTIONS (5)
  - Drug ineffective [Unknown]
  - Anxiety [Unknown]
  - Anger [Unknown]
  - Drug dose omission [Unknown]
  - Nervousness [Unknown]

NARRATIVE: CASE EVENT DATE: 20111226
